FAERS Safety Report 6890182-4 (Version None)
Quarter: 2010Q3

REPORT INFORMATION
  Report Type: 
  Country: None (occurrence: None)
  Receive Date: 20100730
  Receipt Date: 20080825
  Transmission Date: 20110219
  Serious: Yes (Hospitalization, Other)
  Sender: FDA-Public Use
  Company Number: US-PFIZER INC-2008057502

PATIENT
  Sex: Female
  Weight: 123.8 kg

DRUGS (9)
  1. LIPITOR [Suspect]
     Indication: LIPIDS INCREASED
     Dates: start: 20070201, end: 20080501
  2. SYNTHROID [Concomitant]
  3. TOPROL-XL [Concomitant]
  4. ZYRTEC [Concomitant]
  5. PROTONIX [Concomitant]
  6. ALL OTHER THERAPEUTIC PRODUCTS [Concomitant]
  7. SEROQUEL [Concomitant]
  8. XOPENEX [Concomitant]
  9. VITAMIN B [Concomitant]

REACTIONS (1)
  - PANCREATITIS [None]
